FAERS Safety Report 4548938-9 (Version None)
Quarter: 2005Q1

REPORT INFORMATION
  Report Type: 
  Country: None (occurrence: None)
  Receive Date: 20041227
  Receipt Date: 20041108
  Transmission Date: 20050727
  Serious: No
  Sender: FDA-Public Use
  Company Number: 04P-163-0279901-00

PATIENT
  Age: 60 Year
  Sex: Female
  Weight: 103.6 kg

DRUGS (7)
  1. HUMIRA [Suspect]
     Indication: RHEUMATOID ARTHRITIS
     Dosage: 40 MG, 1 IN 2 WK, SUBCUTANEOUS
     Route: 058
     Dates: start: 20040701
  2. PRENDISONE [Concomitant]
  3. HYDROXYCHLOROQUINE PHOSPHATE [Concomitant]
  4. COUMADIN [Concomitant]
  5. METHOTREXATE [Concomitant]
  6. LEVOTHYROXINE SODIUM [Concomitant]
  7. SULFASALAZINE [Concomitant]

REACTIONS (1)
  - DIZZINESS [None]
